FAERS Safety Report 21962408 (Version 12)
Quarter: 2023Q2

REPORT INFORMATION
  Report Type: Report from Study
  Country: US (occurrence: US)
  Receive Date: 20230207
  Receipt Date: 20230608
  Transmission Date: 20230722
  Serious: Yes (Hospitalization, Other)
  Sender: FDA-Public Use
  Company Number: US-GILEAD-2023-0615543

PATIENT
  Age: 66 Year
  Sex: Female

DRUGS (15)
  1. AMBRISENTAN [Suspect]
     Active Substance: AMBRISENTAN
     Indication: Pulmonary arterial hypertension
     Dosage: 10 MG, QD
     Route: 065
     Dates: start: 20151023
  2. AMBRISENTAN [Suspect]
     Active Substance: AMBRISENTAN
     Dosage: 10 MG, QD
     Route: 065
     Dates: start: 201601
  3. AMBRISENTAN [Suspect]
     Active Substance: AMBRISENTAN
     Dosage: 10 MG, QD
     Route: 065
     Dates: start: 202302
  4. AMBRISENTAN [Suspect]
     Active Substance: AMBRISENTAN
     Dosage: 10 MG, QD
     Route: 065
     Dates: start: 201510
  5. ADEMPAS [Suspect]
     Active Substance: RIOCIGUAT
     Indication: Pulmonary arterial hypertension
     Dosage: 1 MG, TID
     Route: 065
     Dates: start: 202301
  6. ADEMPAS [Suspect]
     Active Substance: RIOCIGUAT
     Dosage: 0.5 MG, TID
     Route: 065
     Dates: start: 202301
  7. ADEMPAS [Suspect]
     Active Substance: RIOCIGUAT
     Dosage: 1.5 MG TID
     Route: 065
     Dates: start: 20230130
  8. ADEMPAS [Suspect]
     Active Substance: RIOCIGUAT
     Dosage: 1 MG, TID
     Route: 065
     Dates: start: 202301
  9. ADEMPAS [Suspect]
     Active Substance: RIOCIGUAT
     Dosage: CURRENT DOSE: 1.5 MG TID TITRATION ORDERS: INCREASE EVERY 2 WEEKS BY 0.5 MG TID AS TOLERATED TO A GO
     Route: 065
     Dates: start: 202303
  10. ADEMPAS [Suspect]
     Active Substance: RIOCIGUAT
     Dosage: 1.5 MG, TID
     Route: 065
     Dates: start: 202304
  11. ADEMPAS [Suspect]
     Active Substance: RIOCIGUAT
     Dosage: 1 MG, TID
     Route: 065
     Dates: start: 202305
  12. REMODULIN [Suspect]
     Active Substance: TREPROSTINIL
     Indication: Pulmonary arterial hypertension
     Dosage: 59.1 UG PER MIN
     Route: 058
     Dates: start: 20210421
  13. REMODULIN [Suspect]
     Active Substance: TREPROSTINIL
     Dosage: 51.9 UG PER MIN
     Route: 058
     Dates: start: 202302
  14. REMODULIN [Suspect]
     Active Substance: TREPROSTINIL
     Dosage: 51.9 NG CYCLICAL
     Route: 058
     Dates: start: 202104
  15. REMODULIN [Suspect]
     Active Substance: TREPROSTINIL
     Dosage: 51.9 NG CYCLICAL
     Route: 058
     Dates: start: 202104

REACTIONS (22)
  - Catheterisation cardiac [Unknown]
  - Ascites [Unknown]
  - Stent placement [Unknown]
  - Hypoxia [Not Recovered/Not Resolved]
  - Infusion site pain [Not Recovered/Not Resolved]
  - Diarrhoea [Not Recovered/Not Resolved]
  - Oedema peripheral [Recovered/Resolved]
  - Vomiting [Not Recovered/Not Resolved]
  - Cough [Recovered/Resolved]
  - Balance disorder [Not Recovered/Not Resolved]
  - Headache [Recovering/Resolving]
  - Abdominal pain upper [Not Recovered/Not Resolved]
  - Dyspnoea [Not Recovered/Not Resolved]
  - Fluid retention [Unknown]
  - Hypotension [Recovering/Resolving]
  - Dizziness [Recovering/Resolving]
  - Pain in jaw [Recovered/Resolved]
  - Constipation [Recovered/Resolved]
  - Gait disturbance [Unknown]
  - Injection site erythema [Not Recovered/Not Resolved]
  - Injection site swelling [Not Recovered/Not Resolved]
  - Burning sensation [Not Recovered/Not Resolved]

NARRATIVE: CASE EVENT DATE: 20230209
